FAERS Safety Report 10986072 (Version 2)
Quarter: 2015Q2

REPORT INFORMATION
  Report Type: Spontaneous
  Country: US (occurrence: None)
  Receive Date: 20150310
  Receipt Date: 20150413
  Transmission Date: 20150821
  Serious: Yes (Hospitalization, Other)
  Sender: FDA-Public Use
  Company Number: 1713747-2015-99970

PATIENT
  Age: 62 Year
  Sex: Female
  Weight: 71 kg

DRUGS (4)
  1. ALLOPURINOL 100 MG ORALLY DAILY [Concomitant]
  2. LABETALOL 200 MG ORALLY TWICE A DAY [Concomitant]
  3. NIFEDIPINE 90 MG ORALLY DAILY [Concomitant]
  4. DELFLEX [Suspect]
     Active Substance: CALCIUM CHLORIDE\DEXTROSE MONOHYDRATE\MAGNESIUM CHLORIDE\SODIUM CHLORIDE\SODIUM LACTATE
     Dates: start: 20140130

REACTIONS (1)
  - Peritonitis [None]

NARRATIVE: CASE EVENT DATE: 20140130
